FAERS Safety Report 9465603 (Version 1)
Quarter: 2013Q3

REPORT INFORMATION
  Report Type: Spontaneous
  Country: FR (occurrence: FR)
  Receive Date: 20130820
  Receipt Date: 20130820
  Transmission Date: 20140515
  Serious: Yes (Hospitalization, Other)
  Sender: FDA-Public Use
  Company Number: FR-PAR PHARMACEUTICAL, INC-2013SCPR006102

PATIENT
  Sex: 0

DRUGS (1)
  1. IBUPROFEN [Suspect]
     Indication: BACK PAIN
     Dosage: UNK UNK, MORE THAN 20 TABLETS OF 400 MG IN 2 DAYS
     Route: 048

REACTIONS (4)
  - Toxicity to various agents [Unknown]
  - Inappropriate antidiuretic hormone secretion [Recovered/Resolved]
  - Renal failure acute [Recovered/Resolved]
  - Overdose [Unknown]
